FAERS Safety Report 19614567 (Version 1)
Quarter: 2021Q3

REPORT INFORMATION
  Report Type: Spontaneous
  Country: US (occurrence: US)
  Receive Date: 20210727
  Receipt Date: 20210727
  Transmission Date: 20211014
  Serious: No
  Sender: FDA-Public Use
  Company Number: US-PFIZER INC-2021894439

PATIENT
  Age: 71 Year
  Sex: Male

DRUGS (2)
  1. SULFASALAZINE. [Suspect]
     Active Substance: SULFASALAZINE
     Dosage: 2 DF, DAILY
  2. SULFASALAZINE. [Suspect]
     Active Substance: SULFASALAZINE
     Dosage: 4 DF, DAILY

REACTIONS (2)
  - Intentional product use issue [Unknown]
  - Hypoacusis [Unknown]
